FAERS Safety Report 11937453 (Version 1)
Quarter: 2016Q1

REPORT INFORMATION
  Report Type: Spontaneous
  Country: US (occurrence: US)
  Receive Date: 20160121
  Receipt Date: 20160121
  Transmission Date: 20160526
  Serious: No
  Sender: FDA-Public Use
  Company Number: US-TEVA-625041USA

PATIENT
  Age: 63 Year
  Sex: Male
  Weight: 89.44 kg

DRUGS (5)
  1. OXYCONTIN [Concomitant]
     Active Substance: OXYCODONE HYDROCHLORIDE
     Indication: PAIN
  2. ACTIQ [Suspect]
     Active Substance: FENTANYL CITRATE
     Indication: PROSTATE CANCER
  3. OXYCODONE [Concomitant]
     Active Substance: OXYCODONE
     Indication: PAIN
  4. ACTIQ [Suspect]
     Active Substance: FENTANYL CITRATE
     Indication: T-CELL LYMPHOMA
  5. ACTIQ [Suspect]
     Active Substance: FENTANYL CITRATE
     Indication: NEUROPATHY PERIPHERAL
     Dosage: 400 MICROGRAM DAILY; 400 MCG AT BEDTIME
     Route: 002
     Dates: start: 2002, end: 20151230

REACTIONS (4)
  - Flatulence [Not Recovered/Not Resolved]
  - Drug dose omission [Not Recovered/Not Resolved]
  - Abdominal distension [Not Recovered/Not Resolved]
  - Drug withdrawal syndrome [Not Recovered/Not Resolved]

NARRATIVE: CASE EVENT DATE: 20151230
